FAERS Safety Report 6786174-6 (Version None)
Quarter: 2010Q2

REPORT INFORMATION
  Report Type: 
  Country: None (occurrence: None)
  Receive Date: 20100622
  Receipt Date: 20100622
  Transmission Date: 20101027
  Serious: Yes (Disabling)
  Sender: FDA-Public Use
  Company Number: None

PATIENT
  Age: 31 Year
  Sex: Female
  Weight: 70.3075 kg

DRUGS (1)
  1. CIPRO [Suspect]
     Indication: COLITIS ULCERATIVE
     Dosage: 500 MG 2 TIMES/DAY PO
     Route: 048

REACTIONS (5)
  - ARTHRALGIA [None]
  - HYPOAESTHESIA [None]
  - MUSCULOSKELETAL PAIN [None]
  - PARAESTHESIA [None]
  - TENDON PAIN [None]
